FAERS Safety Report 7754718-3 (Version None)
Quarter: 2011Q3

REPORT INFORMATION
  Report Type: 
  Country: None (occurrence: None)
  Receive Date: 20110915
  Receipt Date: 20110630
  Transmission Date: 20111222
  Serious: Yes (Hospitalization, Other)
  Sender: FDA-Public Use
  Company Number: PHHY2011DE39745

PATIENT
  Sex: Male
  Weight: 61 kg

DRUGS (7)
  1. RASILEZ [Suspect]
     Indication: HYPERTENSION
     Dosage: 300 MG/DAY
     Route: 048
     Dates: start: 20090108
  2. ANTIADRENERGIC AGENTS, CENTRALLY ACTING [Concomitant]
     Dosage: UNK UKN, UNK
  3. BETA BLOCKING AGENTS [Concomitant]
     Dosage: UNK UKN, UNK
  4. THIENOPYRIDINES [Concomitant]
     Dosage: UNK UKN, UNK
  5. STATINS [Concomitant]
     Dosage: UNK UKN, UNK
  6. INSULIN [Concomitant]
     Indication: DIABETES MELLITUS
     Dosage: UNK UKN, UNK
  7. RASILEZ [Suspect]
     Dosage: 150 MG, UNK
     Route: 048

REACTIONS (5)
  - EMBOLISM [None]
  - FEMORAL NECK FRACTURE [None]
  - ATRIAL FIBRILLATION [None]
  - CEREBROVASCULAR ACCIDENT [None]
  - DYSPNOEA [None]
